FAERS Safety Report 4779415-8 (Version None)
Quarter: 2005Q3

REPORT INFORMATION
  Report Type: 
  Country: None (occurrence: None)
  Receive Date: 20050914
  Receipt Date: 20041222
  Transmission Date: 20060218
  Serious: Yes (Other)
  Sender: FDA-Public Use
  Company Number: 163-20785-04120576

PATIENT
  Age: 65 Year
  Sex: Female
  Weight: 73 kg

DRUGS (2)
  1. THALOMID [Suspect]
     Indication: CHRONIC LYMPHOCYTIC LEUKAEMIA
     Dosage: 100 MG DAY 1 INCREASED BY 50-100 MG EVERY 1-2 WEEKS TO 1000 MG MAX., QHS, ORAL
     Route: 048
     Dates: start: 20031107
  2. FLUDARABINE PHOSPHATE [Suspect]
     Indication: CHRONIC LYMPHOCYTIC LEUKAEMIA
     Dosage: 25 MG/M2 IV OVER 30 MIN. QD FOR 5 DAYS EVERY 28 DAYS
     Route: 042
     Dates: start: 20031107, end: 20040507

REACTIONS (1)
  - SQUAMOUS CELL CARCINOMA OF SKIN [None]
